FAERS Safety Report 23464816 (Version 1)
Quarter: 2024Q1

REPORT INFORMATION
  Report Type: Spontaneous
  Country: FR (occurrence: FR)
  Receive Date: 20240201
  Receipt Date: 20240201
  Transmission Date: 20240409
  Serious: Yes (Other)
  Sender: FDA-Public Use
  Company Number: FR-AFSSAPS-ST2023001321

PATIENT
  Sex: Male

DRUGS (1)
  1. IBUPROFEN [Suspect]
     Active Substance: IBUPROFEN
     Indication: Product used for unknown indication
     Dosage: 1 DOSAGE FORM, UNK, 1 SOCKET IN TOTAL
     Route: 048

REACTIONS (3)
  - Urticaria [Recovered/Resolved]
  - Palpitations [Recovered/Resolved]
  - Angioedema [Recovered/Resolved]
